FAERS Safety Report 16404702 (Version 1)
Quarter: 2019Q2

REPORT INFORMATION
  Report Type: Spontaneous
  Country: GB (occurrence: GB)
  Receive Date: 20190607
  Receipt Date: 20190607
  Transmission Date: 20190711
  Serious: Yes (Other)
  Sender: FDA-Public Use
  Company Number: GB-AMGEN-GBRSP2019087566

PATIENT

DRUGS (1)
  1. PROLIA [Suspect]
     Active Substance: DENOSUMAB
     Indication: OSTEOPOROSIS
     Dosage: UNK
     Route: 065

REACTIONS (8)
  - Heart rate increased [Recovering/Resolving]
  - White blood cell count decreased [Unknown]
  - Abdominal distension [Recovering/Resolving]
  - Decreased appetite [Unknown]
  - Palpitations [Unknown]
  - Weight decreased [Unknown]
  - Abdominal tenderness [Recovering/Resolving]
  - Vomiting [Unknown]
